FAERS Safety Report 16306290 (Version 1)
Quarter: 2019Q2

REPORT INFORMATION
  Report Type: Spontaneous
  Country: PT (occurrence: PT)
  Receive Date: 20190513
  Receipt Date: 20190513
  Transmission Date: 20190711
  Serious: Yes (Other)
  Sender: FDA-Public Use
  Company Number: PT-SA-2019SA123768

PATIENT
  Age: 67 Year
  Sex: Male

DRUGS (1)
  1. BCG FOR IMMUNOTHERAPY [Suspect]
     Active Substance: BACILLUS CALMETTE-GUERIN ANTIGEN, UNSPECIFIED SUBSTRAIN
     Indication: BLADDER CANCER
     Dosage: UNK
     Route: 065

REACTIONS (5)
  - Disseminated Bacillus Calmette-Guerin infection [Recovered/Resolved]
  - Urinary tract infection [Unknown]
  - Pyrexia [Recovered/Resolved]
  - Rales [Recovered/Resolved]
  - Granulomatous pneumonitis [Recovered/Resolved]
